FAERS Safety Report 25159066 (Version 1)
Quarter: 2025Q2

REPORT INFORMATION
  Report Type: Report from Study
  Country: US (occurrence: US)
  Receive Date: 20250404
  Receipt Date: 20250404
  Transmission Date: 20250717
  Serious: No
  Sender: DR REDDYS
  Company Number: US-DRL-USA-USA/2025/03/004526

PATIENT
  Sex: Female
  Weight: 90.54 kg

DRUGS (1)
  1. JAVYGTOR [Suspect]
     Active Substance: SAPROPTERIN DIHYDROCHLORIDE
     Indication: Hyperphenylalaninaemia
     Route: 048

REACTIONS (3)
  - Maternal exposure during pregnancy [Unknown]
  - Overdose [Unknown]
  - Product prescribing error [Unknown]
